FAERS Safety Report 9228941 (Version 1)
Quarter: 2013Q2

REPORT INFORMATION
  Report Type: Spontaneous
  Country: CH (occurrence: CH)
  Receive Date: 20130412
  Receipt Date: 20130412
  Transmission Date: 20140414
  Serious: Yes (Hospitalization)
  Sender: FDA-Public Use
  Company Number: PHHY2013CH033354

PATIENT
  Age: 89 Year
  Sex: Female

DRUGS (13)
  1. DIGOXIN [Suspect]
     Indication: ATRIAL FIBRILLATION
     Dosage: 0.25 MG, QD
     Route: 048
     Dates: start: 20130228, end: 20130320
  2. OEDEMEX [Interacting]
     Indication: CARDIAC FAILURE
     Dosage: 2 DF, BID
     Route: 048
     Dates: start: 20121005, end: 20130320
  3. ALDACTONE [Interacting]
     Indication: CARDIAC FAILURE
     Dosage: 2 DF, BID
     Route: 048
     Dates: start: 20130228, end: 20130320
  4. MOTILIN [Concomitant]
     Indication: NAUSEA
     Route: 048
     Dates: start: 20130319, end: 20130320
  5. ASPIRINE [Concomitant]
     Indication: ESSENTIAL HYPERTENSION
     Route: 048
  6. SIMCORA [Concomitant]
     Indication: HYPERLIPIDAEMIA
     Dosage: 20 MG, QD
     Route: 048
  7. DAFALGAN [Concomitant]
     Indication: PAIN
     Dosage: 1 G, QID
     Route: 048
  8. CITALOPRAM ECOSOL [Concomitant]
     Indication: DEPRESSION
     Dosage: 20 MG, QD
     Route: 048
  9. QUETIAPIN SANDOZ [Concomitant]
     Indication: ANXIETY DISORDER
     Dosage: 25 MG, TID
     Route: 048
  10. DONEPEZILO MEPHA [Concomitant]
     Indication: DEMENTIA
     Dosage: 10 MG, QD
     Route: 048
  11. PRAMIPEXOLE [Concomitant]
     Indication: RESTLESSNESS
     Dosage: 0.125 MG, QD
     Route: 048
  12. EUTHYROX [Concomitant]
     Indication: HYPOTHYROIDISM
     Dosage: 0.1 MG, QD
     Route: 048
  13. CALCIMAGON D3 [Concomitant]
     Indication: PROPHYLACTIC CHEMOTHERAPY
     Dosage: 1 DF, QD
     Route: 048

REACTIONS (8)
  - Renal failure acute [Recovered/Resolved]
  - Dehydration [Recovered/Resolved]
  - Hyperkalaemia [Recovered/Resolved]
  - Medication error [Recovered/Resolved]
  - Therapeutic response increased [Recovered/Resolved]
  - Asthenia [Recovering/Resolving]
  - Vomiting [Recovered/Resolved]
  - Nausea [Recovered/Resolved]
